FAERS Safety Report 25742114 (Version 2)
Quarter: 2025Q3

REPORT INFORMATION
  Report Type: Report from Study
  Country: US (occurrence: US)
  Receive Date: 20250829
  Receipt Date: 20250905
  Transmission Date: 20251021
  Serious: Yes (Other)
  Sender: AMGEN
  Company Number: US-AMGEN-USASP2025166552

PATIENT
  Age: 78 Year
  Sex: Female
  Weight: 27 kg

DRUGS (1)
  1. PROLIA [Suspect]
     Active Substance: DENOSUMAB
     Indication: Osteoporosis
     Dosage: UNK UNK, Q6MO (BELIEVE EVERY 6 MONTHS BUT UNSURE)
     Route: 058

REACTIONS (7)
  - Osteomyelitis [Not Recovered/Not Resolved]
  - Oral infection [Not Recovered/Not Resolved]
  - Abscess jaw [Not Recovered/Not Resolved]
  - Dental operation [Not Recovered/Not Resolved]
  - Weight decreased [Not Recovered/Not Resolved]
  - Gastrointestinal disorder [Not Recovered/Not Resolved]
  - Eating disorder [Not Recovered/Not Resolved]

NARRATIVE: CASE EVENT DATE: 20220101
